FAERS Safety Report 9152132 (Version 1)
Quarter: 2013Q1

REPORT INFORMATION
  Report Type: Spontaneous
  Country: US (occurrence: US)
  Receive Date: 20130308
  Receipt Date: 20130308
  Transmission Date: 20140127
  Serious: No
  Sender: FDA-Public Use
  Company Number: US-BAYER-2013-028837

PATIENT
  Age: 63 Year
  Sex: Male

DRUGS (2)
  1. BETASERON [Suspect]
  2. AMPYRA [Concomitant]

REACTIONS (1)
  - Injection site reaction [None]
